FAERS Safety Report 9340285 (Version 1)
Quarter: 2013Q2

REPORT INFORMATION
  Report Type: Spontaneous
  Country: US (occurrence: None)
  Receive Date: 20130610
  Receipt Date: 20130610
  Transmission Date: 20140414
  Serious: Yes (Death, Hospitalization)
  Sender: FDA-Public Use
  Company Number: None

PATIENT
  Age: 19 Year
  Sex: Female
  Weight: 59.8 kg

DRUGS (3)
  1. CYTARABINE [Suspect]
     Dates: end: 20121231
  2. IDARUBICIN [Suspect]
     Dates: end: 20130106
  3. TRETINOIN [Suspect]
     Dates: end: 20130115

REACTIONS (1)
  - Death [None]
